FAERS Safety Report 10543512 (Version 2)
Quarter: 2015Q2

REPORT INFORMATION
  Report Type: Spontaneous
  Country: US (occurrence: US)
  Receive Date: 20141027
  Receipt Date: 20150403
  Transmission Date: 20150821
  Serious: Yes (Death, Hospitalization, Other)
  Sender: FDA-Public Use
  Company Number: US-PFIZER INC-2014290175

PATIENT
  Age: 19 Year
  Sex: Male

DRUGS (10)
  1. INLYTA [Suspect]
     Active Substance: AXITINIB
     Indication: RENAL CANCER
     Dosage: 10 MG, 2X/DAY
     Dates: start: 201403, end: 20140928
  2. ZOFRAN [Concomitant]
     Active Substance: ONDANSETRON HYDROCHLORIDE
     Dosage: 4 MG (UNSPECIFIED FREQUENCY)
     Route: 048
     Dates: start: 20131025
  3. OXYCONTIN [Concomitant]
     Active Substance: OXYCODONE HYDROCHLORIDE
     Indication: PAIN
     Dosage: 30 MG, 2X/DAY
     Dates: start: 201402, end: 20140928
  4. HYDROCODONE/ACETAMINOPHEN [Concomitant]
     Active Substance: ACETAMINOPHEN\HYDROCODONE
     Dosage: 7.5-325 (UNSPECIFIED UNIT)
     Dates: start: 20131025
  5. OXYCODONE [Concomitant]
     Active Substance: OXYCODONE
     Indication: PAIN
     Dosage: UNK (5-15) PRN
     Route: 048
     Dates: start: 201312, end: 20140928
  6. LASIX [Concomitant]
     Active Substance: FUROSEMIDE
     Indication: PAIN
     Dosage: 20 MG, DAILY
     Route: 048
     Dates: start: 201408, end: 20140928
  7. LEVOTHYROXIN [Concomitant]
     Active Substance: LEVOTHYROXINE
     Dosage: 100 ?G, DAILY
     Route: 048
     Dates: start: 201408, end: 20140928
  8. REGLAN [Concomitant]
     Active Substance: METOCLOPRAMIDE HYDROCHLORIDE
     Dosage: 5 MG (UNSPECIFIED FREQUENCY) AT BEDTIME
     Route: 048
     Dates: start: 20131025
  9. POTASSIUM [Concomitant]
     Active Substance: POTASSIUM
     Dosage: 75 MG, 2X/DAY
     Route: 048
  10. SUTENT [Concomitant]
     Active Substance: SUNITINIB MALATE
     Dosage: 50 MG (UNSPECIFIED FREQUENCY)
     Dates: start: 20140221, end: 20140221

REACTIONS (8)
  - Renal impairment [Unknown]
  - Pyrexia [Unknown]
  - Hypoglycaemia [Unknown]
  - Ascites [Unknown]
  - White blood cell count increased [Unknown]
  - Disease progression [Fatal]
  - Renal cancer [Fatal]
  - Hypotension [Recovered/Resolved]

NARRATIVE: CASE EVENT DATE: 20140929
